FAERS Safety Report 6408790-3 (Version None)
Quarter: 2009Q4

REPORT INFORMATION
  Report Type: 
  Country: None (occurrence: None)
  Receive Date: 20091019
  Receipt Date: 20091005
  Transmission Date: 20100525
  Serious: Yes (Hospitalization)
  Sender: FDA-Public Use
  Company Number: 2009100016

PATIENT
  Age: 88 Year
  Sex: Male

DRUGS (9)
  1. TORSEMIDE [Suspect]
     Indication: OEDEMA PERIPHERAL
     Dosage: 4 MG (4 MG,1 IN 1 D),ORAL
     Route: 048
     Dates: start: 20090407, end: 20090807
  2. CARDENALIN            (DOXAZOSIN MESYLATE) [Concomitant]
  3. LANSOPRAZOLE [Concomitant]
  4. DIOVAN [Concomitant]
  5. ITRACONAZOLE [Concomitant]
  6. PRERAN (TARNDOLAPRIL) [Concomitant]
  7. AMLODIPINE BESYLATE [Concomitant]
  8. SELBEX (TEPRENONE) [Concomitant]
  9. PARENTERAL NUTRITION STUDY DRUG(PARENTERAL NUTRITION) [Concomitant]

REACTIONS (2)
  - DERMATITIS EXFOLIATIVE [None]
  - PRURITUS [None]
